FAERS Safety Report 6923772-0 (Version None)
Quarter: 2010Q3

REPORT INFORMATION
  Report Type: 
  Country: None (occurrence: None)
  Receive Date: 20100813
  Receipt Date: 20100811
  Transmission Date: 20110219
  Serious: Yes (Life-Threatening, Hospitalization)
  Sender: FDA-Public Use
  Company Number: JP-JNJFOC-20100803726

PATIENT
  Age: 80 Year
  Sex: Male

DRUGS (12)
  1. LEVOFLOXACIN [Suspect]
     Indication: ENTEROBACTER SEPSIS
     Route: 048
  2. BACTRIM DS [Suspect]
     Indication: ENTEROBACTER SEPSIS
     Dosage: 800+160 MG
     Route: 048
  3. VANCOMYCIN [Suspect]
     Indication: ENTEROBACTER SEPSIS
     Route: 042
  4. GENTAMICIN [Suspect]
     Indication: ENTEROBACTER SEPSIS
     Route: 042
  5. FLUINDIONE [Concomitant]
     Indication: ARRHYTHMIA PROPHYLAXIS
     Route: 065
  6. PERINDOPRIL ERBUMINE [Concomitant]
     Indication: ARRHYTHMIA PROPHYLAXIS
     Route: 065
  7. LASIX [Concomitant]
     Indication: CARDIAC FAILURE
     Route: 065
  8. DIGOXIN [Concomitant]
     Indication: ATRIAL FIBRILLATION
     Route: 065
  9. SERESTA [Concomitant]
     Indication: PRODUCT USED FOR UNKNOWN INDICATION
     Route: 065
  10. XANAX [Concomitant]
     Indication: PRODUCT USED FOR UNKNOWN INDICATION
     Route: 065
  11. OMEXEL [Concomitant]
     Indication: PROSTATIC DISORDER
     Route: 065
  12. FOLINIC ACID [Concomitant]
     Indication: PRODUCT USED FOR UNKNOWN INDICATION
     Route: 065

REACTIONS (3)
  - AUTOIMMUNE THROMBOCYTOPENIA [None]
  - HAEMORRHAGIC DISORDER [None]
  - THROMBOCYTOPENIA [None]
